FAERS Safety Report 22047534 (Version 2)
Quarter: 2023Q1

REPORT INFORMATION
  Report Type: Spontaneous
  Country: AU (occurrence: None)
  Receive Date: 20230301
  Receipt Date: 20230308
  Transmission Date: 20230418
  Serious: Yes (Other)
  Sender: FDA-Public Use
  Company Number: AU-ROCHE-3291924

PATIENT
  Sex: Male

DRUGS (17)
  1. RITUXIMAB [Suspect]
     Active Substance: RITUXIMAB
     Indication: Burkitt^s lymphoma refractory
     Dosage: 1L TREATMENT, DA-R-EPOCH
     Route: 065
     Dates: start: 20220912, end: 20221212
  2. RITUXIMAB [Suspect]
     Active Substance: RITUXIMAB
     Dosage: 3L TREATMENT, R-ICE
     Route: 065
     Dates: start: 20230127, end: 20230220
  3. FILGRASTIM [Suspect]
     Active Substance: FILGRASTIM
     Indication: Burkitt^s lymphoma refractory
     Route: 065
  4. ETOPOSIDE [Suspect]
     Active Substance: ETOPOSIDE
     Indication: Burkitt^s lymphoma refractory
     Dosage: 1L TREATMENT, DA-R-EPOCH
     Route: 065
     Dates: start: 20220912, end: 20221212
  5. ETOPOSIDE [Suspect]
     Active Substance: ETOPOSIDE
     Dosage: 3L TREATMENT, R-ICE
     Route: 065
     Dates: start: 20230127, end: 20230220
  6. PREDNISONE [Suspect]
     Active Substance: PREDNISONE
     Indication: Burkitt^s lymphoma refractory
     Dosage: 1L TREATMENT, DA-R-EPOCH
     Route: 065
     Dates: start: 20220912, end: 20221212
  7. VINCRISTINE [Suspect]
     Active Substance: VINCRISTINE
     Indication: Burkitt^s lymphoma refractory
     Dosage: 1L TREATMENT, DA-R-EPOCH
     Route: 065
     Dates: start: 20220912, end: 20221212
  8. VINCRISTINE [Suspect]
     Active Substance: VINCRISTINE
     Dosage: 2L TREATMENT, HYPERCVAD B CYCLE
     Route: 065
     Dates: start: 20221231, end: 20230121
  9. CYCLOPHOSPHAMIDE\DOXORUBICIN [Suspect]
     Active Substance: CYCLOPHOSPHAMIDE\DOXORUBICIN
     Indication: Burkitt^s lymphoma refractory
     Dosage: 1L TREATMENT, DA-R-EPOCH
     Route: 065
     Dates: start: 20220912, end: 20221212
  10. CYCLOPHOSPHAMIDE\DOXORUBICIN [Suspect]
     Active Substance: CYCLOPHOSPHAMIDE\DOXORUBICIN
     Dosage: 2L TREATMENT, HYPERCVAD B CYCLE
     Route: 065
     Dates: start: 20221231, end: 20230121
  11. DEXAMETHASONE [Suspect]
     Active Substance: DEXAMETHASONE
     Indication: Burkitt^s lymphoma refractory
     Dosage: 2L TREATMENT, HYPERCVAD B CYCLE
     Route: 065
     Dates: start: 20221231, end: 20230121
  12. CARBOPLATIN [Suspect]
     Active Substance: CARBOPLATIN
     Indication: Burkitt^s lymphoma refractory
     Dosage: 3L TREATMENT, R-ICE
     Route: 065
     Dates: start: 20230127, end: 20230220
  13. IFOSFAMIDE [Suspect]
     Active Substance: IFOSFAMIDE
     Indication: Burkitt^s lymphoma refractory
     Dosage: 3L TREATMENT, R-ICE
     Route: 065
     Dates: start: 20230127, end: 20230220
  14. VALTREX [Concomitant]
     Active Substance: VALACYCLOVIR HYDROCHLORIDE
  15. ENTECAVIR [Concomitant]
     Active Substance: ENTECAVIR
  16. PANTOPRAZOLE [Concomitant]
     Active Substance: PANTOPRAZOLE
  17. BACTRIM [Concomitant]
     Active Substance: SULFAMETHOXAZOLE\TRIMETHOPRIM
     Dosage: BACTRIM D/S 160/800MG MONDAY AND THURSDAYS BD
     Route: 065

REACTIONS (3)
  - Disease progression [Unknown]
  - Burkitt^s lymphoma [Unknown]
  - Necrosis [Unknown]
